FAERS Safety Report 15927073 (Version 2)
Quarter: 2019Q1

REPORT INFORMATION
  Report Type: Spontaneous
  Country: US (occurrence: US)
  Receive Date: 20190205
  Receipt Date: 20190219
  Transmission Date: 20190417
  Serious: No
  Sender: FDA-Public Use
  Company Number: US-ALLERGAN-1850408US

PATIENT
  Age: 70 Year
  Sex: Female
  Weight: 79.37 kg

DRUGS (8)
  1. BOTOX [Suspect]
     Active Substance: ONABOTULINUMTOXINA
     Indication: SKIN WRINKLING
  2. SYNTHROID [Concomitant]
     Active Substance: LEVOTHYROXINE SODIUM
     Dosage: UNK UNK, QD
     Route: 048
  3. BOTOX [Suspect]
     Active Substance: ONABOTULINUMTOXINA
     Indication: SKIN WRINKLING
  4. OMEPRAZOLE. [Concomitant]
     Active Substance: OMEPRAZOLE
     Dosage: UNK UNK, QD
     Route: 048
  5. BOTOX [Suspect]
     Active Substance: ONABOTULINUMTOXINA
     Indication: SKIN WRINKLING
  6. CYMBALTA [Concomitant]
     Active Substance: DULOXETINE HYDROCHLORIDE
     Indication: DEPRESSION
     Dosage: UNK UNK, QD
     Route: 048
  7. BOTOX [Suspect]
     Active Substance: ONABOTULINUMTOXINA
     Indication: BLEPHAROSPASM
     Dosage: 100 UNITS, SINGLE
     Route: 030
     Dates: start: 20180828, end: 20180828
  8. BUPROPION XL [Concomitant]
     Active Substance: BUPROPION
     Dosage: UNK UNK, QD
     Route: 048

REACTIONS (1)
  - Diplopia [Not Recovered/Not Resolved]

NARRATIVE: CASE EVENT DATE: 20180828
